FAERS Safety Report 21093655 (Version 5)
Quarter: 2022Q3

REPORT INFORMATION
  Report Type: Report from Study
  Country: CN (occurrence: None)
  Receive Date: 20220718
  Receipt Date: 20220809
  Transmission Date: 20221026
  Serious: Yes (Hospitalization)
  Sender: FDA-Public Use
  Company Number: CN-ROCHE-3139932

PATIENT
  Age: 79 Year
  Sex: Female
  Weight: 60.7 kg

DRUGS (15)
  1. POLATUZUMAB VEDOTIN [Suspect]
     Active Substance: POLATUZUMAB VEDOTIN
     Indication: Diffuse large B-cell lymphoma refractory
     Dosage: DOSE OF LAST POLATUZUMAB VEDOTIN ADMINISTERED PRIOR TO AE ONSET 113 MG
     Route: 042
     Dates: start: 20220629
  2. RITUXIMAB [Suspect]
     Active Substance: RITUXIMAB
     Indication: Diffuse large B-cell lymphoma refractory
     Dosage: DOSE OF LAST RITUXIMAB ADMINISTERED PRIOR TO AE ONSET 623 MG
     Route: 041
     Dates: start: 20220629
  3. GEMCITABINE [Suspect]
     Active Substance: GEMCITABINE
     Indication: Diffuse large B-cell lymphoma refractory
     Dosage: DOSE OF LAST GEMCITABINE ADMINISTERED PRIOR TO SAE ONSET 1660 MG
     Route: 042
     Dates: start: 20220630
  4. OXALIPLATIN [Suspect]
     Active Substance: OXALIPLATIN
     Indication: Diffuse large B-cell lymphoma refractory
     Dosage: DOSE OF LAST OXALIPLATIN ADMINISTERED PRIOR TO AE ONSET 166 MG
     Route: 042
     Dates: start: 20220630
  5. PERINDOPRIL ERBUMINE [Concomitant]
     Active Substance: PERINDOPRIL ERBUMINE
     Route: 048
  6. DAPAGLIFLOZIN [Concomitant]
     Active Substance: DAPAGLIFLOZIN
     Route: 048
  7. COMPOUND PARACETAMOL BROMIDE (UNK INGREDIENTS) [Concomitant]
     Route: 048
     Dates: start: 20220629
  8. DIPHENHYDRAMINE HYDROCHLORIDE [Concomitant]
     Active Substance: DIPHENHYDRAMINE HYDROCHLORIDE
     Route: 030
     Dates: start: 20220630
  9. DEXAMETHASONE SODIUM PHOSPHATE [Concomitant]
     Active Substance: DEXAMETHASONE SODIUM PHOSPHATE
     Route: 042
     Dates: start: 20220629, end: 20220629
  10. DEXAMETHASONE SODIUM PHOSPHATE [Concomitant]
     Active Substance: DEXAMETHASONE SODIUM PHOSPHATE
     Route: 042
     Dates: start: 20220630, end: 20220630
  11. ILAPRAZOLE [Concomitant]
     Active Substance: ILAPRAZOLE
     Route: 042
     Dates: start: 20220629
  12. FOSAPREPITANT DIMEGLUMINE [Concomitant]
     Active Substance: FOSAPREPITANT DIMEGLUMINE
     Route: 042
     Dates: start: 20220630, end: 20220630
  13. DOLASETRON MESYLATE [Concomitant]
     Active Substance: DOLASETRON MESYLATE
     Route: 042
     Dates: start: 20220630, end: 20220630
  14. RABEPRAZOLE [Concomitant]
     Active Substance: RABEPRAZOLE
     Route: 042
     Dates: start: 20220630, end: 20220630
  15. INSULIN NOS [Concomitant]
     Active Substance: INSULIN NOS
     Dosage: 6 UNITS
     Route: 042
     Dates: start: 20220630, end: 20220630

REACTIONS (1)
  - Platelet count decreased [Recovered/Resolved]

NARRATIVE: CASE EVENT DATE: 20220703
